FAERS Safety Report 10456519 (Version 1)
Quarter: 2014Q3

REPORT INFORMATION
  Report Type: Spontaneous
  Country: US (occurrence: None)
  Receive Date: 20140915
  Receipt Date: 20140915
  Transmission Date: 20150326
  Serious: No
  Sender: FDA-Public Use
  Company Number: None

PATIENT

DRUGS (2)
  1. FERROCITE [Suspect]
     Active Substance: FERROUS FUMARATE
     Dosage: TABLET ORAL UNIT DOSE TABLETS
     Route: 048
  2. FERROUS SULFATE [Suspect]
     Active Substance: FERROUS SULFATE\FERROUS SULFATE, DRIED
     Dosage: TABLET ORAL 5 GR UNIT DOSE TABLETS
     Route: 048

REACTIONS (1)
  - Product label confusion [None]
